FAERS Safety Report 25251936 (Version 1)
Quarter: 2025Q2

REPORT INFORMATION
  Report Type: Spontaneous
  Country: US (occurrence: US)
  Receive Date: 20250429
  Receipt Date: 20250429
  Transmission Date: 20250717
  Serious: No
  Sender: MERCK SHARP & DOHME LLC
  Company Number: US-009507513-2280453

PATIENT
  Age: 54 Year
  Sex: Male

DRUGS (3)
  1. TEMOZOLOMIDE [Suspect]
     Active Substance: TEMOZOLOMIDE
     Indication: Isocitrate dehydrogenase gene mutation
     Route: 048
  2. PEMBROLIZUMAB [Concomitant]
     Active Substance: PEMBROLIZUMAB
     Indication: Isocitrate dehydrogenase gene mutation
  3. LOMUSTINE [Concomitant]
     Active Substance: LOMUSTINE
     Indication: Isocitrate dehydrogenase gene mutation

REACTIONS (1)
  - Hypermutation [Unknown]
